FAERS Safety Report 18944347 (Version 1)
Quarter: 2021Q1

REPORT INFORMATION
  Report Type: Spontaneous
  Country: DE (occurrence: DE)
  Receive Date: 20210226
  Receipt Date: 20210226
  Transmission Date: 20210420
  Serious: Yes (Hospitalization)
  Sender: FDA-Public Use
  Company Number: DE-AUROBINDO-AUR-APL-2021-007687

PATIENT
  Age: 5 Month
  Sex: Male
  Weight: 4 kg

DRUGS (5)
  1. FUROSEMID [Concomitant]
     Active Substance: FUROSEMIDE
     Indication: EFFUSION
     Dosage: 27.6 MILLIGRAM, ONCE A DAY (EVERY DAYS 4 SEPARATED DOSES)
     Route: 048
     Dates: start: 20190126
  2. FERRO SANOL [Concomitant]
     Active Substance: FERROUS GLYCINE SULFATE
     Indication: ANAEMIA
     Dosage: 16 GTT DROPS, ONCE A DAY ( EVERY DAYS 4 SEPARATED DOSES)
     Route: 048
     Dates: start: 20190126
  3. URSOFALK [Concomitant]
     Active Substance: URSODIOL
     Indication: CHOLESTASIS
     Dosage: 60 MILLIGRAM, ONCE A DAY (DAILY DOSE: 60 MG MILLGRAM(S) EVERY DAYS 2 SEPARATED DOSES)
     Route: 048
     Dates: start: 20190126
  4. SILDENAFIL. [Suspect]
     Active Substance: SILDENAFIL
     Indication: PULMONARY HYPERTENSION
     Dosage: UNK
     Route: 048
     Dates: start: 20190126
  5. SPIRONOLACTONE. [Concomitant]
     Active Substance: SPIRONOLACTONE
     Indication: EFFUSION
     Dosage: 12.5 MILLIGRAM, ONCE A DAY
     Route: 048
     Dates: start: 20190126

REACTIONS (3)
  - Incorrect dose administered [Recovered/Resolved]
  - Product administration error [Recovered/Resolved]
  - No adverse event [Recovered/Resolved]

NARRATIVE: CASE EVENT DATE: 20190616
